FAERS Safety Report 8531056 (Version 2)
Quarter: 2013Q1

REPORT INFORMATION
  Report Type: Spontaneous
  Country: US (occurrence: US)
  Receive Date: 20120426
  Receipt Date: 20130130
  Transmission Date: 20140127
  Serious: Yes (Hospitalization)
  Sender: FDA-Public Use
  Company Number: US-SANOFI-AVENTIS-2012SA027650

PATIENT
  Age: 77 Year
  Sex: Male
  Weight: 90.91 kg

DRUGS (9)
  1. APIDRA [Suspect]
     Indication: TYPE 2 DIABETES MELLITUS
     Dosage: PER SLIDING SCALE WITH MEALS
     Route: 058
     Dates: start: 2002
  2. LANTUS SOLOSTAR [Suspect]
     Indication: TYPE 2 DIABETES MELLITUS
     Dosage: DOSE:48 UNIT(S)
     Route: 058
     Dates: start: 2002
  3. SOLOSTAR [Suspect]
     Indication: TYPE 2 DIABETES MELLITUS
  4. ZETIA [Concomitant]
     Dates: start: 20051221
  5. AVAPRO [Concomitant]
     Dates: start: 20060120
  6. DETROL [Concomitant]
     Dates: start: 20100715
  7. WARFARIN [Concomitant]
     Dosage: AS DIRECTED
     Dates: start: 20091026
  8. HYDROCHLOROTHIAZIDE [Concomitant]
     Dates: start: 20060829
  9. AMLODIPINE [Concomitant]
     Dates: start: 20060202

REACTIONS (1)
  - Cataract [Recovering/Resolving]
